FAERS Safety Report 10027532 (Version 1)
Quarter: 2014Q1

REPORT INFORMATION
  Report Type: Spontaneous
  Country: IT (occurrence: None)
  Receive Date: 20140319
  Receipt Date: 20140319
  Transmission Date: 20141002
  Serious: Yes (Hospitalization)
  Sender: FDA-Public Use
  Company Number: 2014AP001846

PATIENT
  Age: 67 Year
  Sex: Female

DRUGS (4)
  1. AZITHROMYCIN [Suspect]
     Indication: PRODUCT USED FOR UNKNOWN INDICATION
     Route: 048
     Dates: start: 20140205, end: 20140205
  2. DELTACORTENE (PREDNISONE) [Concomitant]
  3. PLAQUENIL /0072603/ (HYDROXYCHLOROQUINE SULFATE) [Concomitant]
  4. DIDROGYL (CALCIFEDIOL) [Concomitant]

REACTIONS (3)
  - Abdominal pain upper [None]
  - Bone pain [None]
  - Hyperhidrosis [None]
